FAERS Safety Report 4863793-5 (Version None)
Quarter: 2005Q4

REPORT INFORMATION
  Report Type: 
  Country: None (occurrence: None)
  Receive Date: 20051222
  Receipt Date: 20050826
  Transmission Date: 20060501
  Serious: No
  Sender: FDA-Public Use
  Company Number: US-GLAXOSMITHKLINE-A0571988A

PATIENT
  Age: 78 Year
  Sex: Female

DRUGS (4)
  1. FLONASE [Suspect]
     Dosage: 50MCG UNKNOWN
     Route: 045
     Dates: start: 20050101, end: 20050101
  2. CRESTOR [Concomitant]
  3. ASPIRIN [Concomitant]
  4. DIOVAN [Concomitant]

REACTIONS (1)
  - DRUG INEFFECTIVE [None]
